FAERS Safety Report 8520680-9 (Version None)
Quarter: 2012Q3

REPORT INFORMATION
  Report Type: 
  Country: None (occurrence: None)
  Receive Date: 20120705
  Receipt Date: 20120626
  Transmission Date: 20120928
  Serious: Yes (Other)
  Sender: FDA-Public Use
  Company Number: 2012SP028859

PATIENT
  Age: 48 Year
  Sex: Female

DRUGS (5)
  1. VICTRELIS [Suspect]
     Indication: HEPATITIS C
     Dosage: 800 MG; TID
     Dates: start: 20110530, end: 20120402
  2. FOLIC ACID [Concomitant]
  3. PEGASYS [Suspect]
     Indication: HEPATITIS C
     Dosage: 150 MCG ; QW
     Dates: start: 20110502, end: 20120402
  4. DELURSAN [Concomitant]
  5. BETASELEN [Concomitant]

REACTIONS (1)
  - PORPHYRIA NON-ACUTE [None]
